FAERS Safety Report 16569422 (Version 1)
Quarter: 2019Q3

REPORT INFORMATION
  Report Type: Spontaneous
  Country: DE (occurrence: DE)
  Receive Date: 20190715
  Receipt Date: 20190715
  Transmission Date: 20191004
  Serious: No
  Sender: FDA-Public Use
  Company Number: DE-BEH-2019104133

PATIENT
  Sex: Male
  Weight: 65 kg

DRUGS (2)
  1. BERINERT [Suspect]
     Active Substance: HUMAN C1-ESTERASE INHIBITOR
     Dosage: 30 INTERNATIONAL UNIT/KILOGRAM
     Route: 058
  2. BERINERT [Suspect]
     Active Substance: HUMAN C1-ESTERASE INHIBITOR
     Dosage: 30 INTERNATIONAL UNIT/KILOGRAM
     Route: 058

REACTIONS (2)
  - No adverse event [Unknown]
  - Incorrect dose administered [Unknown]
